FAERS Safety Report 5441190-1 (Version None)
Quarter: 2007Q3

REPORT INFORMATION
  Report Type: 
  Country: None (occurrence: None)
  Receive Date: 20070901
  Receipt Date: 20070822
  Transmission Date: 20080115
  Serious: Yes (Other)
  Sender: FDA-Public Use
  Company Number: FR-PFIZER INC-2007069996

PATIENT
  Weight: 99 kg

DRUGS (4)
  1. MEDROL [Suspect]
     Indication: POLYARTHRITIS
  2. ALDACTAZINE [Concomitant]
     Indication: HYPERTENSION
  3. DIAMICRON [Concomitant]
     Indication: DIABETES MELLITUS
  4. CORDARONE [Concomitant]
     Indication: ARRHYTHMIA
     Dosage: DAILY DOSE:200MG

REACTIONS (4)
  - ARTHRALGIA [None]
  - CHRONIC OBSTRUCTIVE PULMONARY DISEASE [None]
  - LIPOMATOSIS [None]
  - PARAESTHESIA [None]
